FAERS Safety Report 7858055-8 (Version None)
Quarter: 2011Q4

REPORT INFORMATION
  Report Type: 
  Country: None (occurrence: None)
  Receive Date: 20111027
  Receipt Date: 20111013
  Transmission Date: 20120403
  Serious: Yes (Hospitalization, Other)
  Sender: FDA-Public Use
  Company Number: US-BAYER-2011-012414

PATIENT
  Age: 21 Year
  Sex: Female
  Weight: 82 kg

DRUGS (4)
  1. PHENTERMINE [Concomitant]
     Dosage: 37.5 MG, QD
     Route: 048
     Dates: start: 20080520, end: 20080723
  2. YAZ [Suspect]
     Indication: PREMENSTRUAL SYNDROME
     Dosage: UNK
     Dates: start: 20080801, end: 20090101
  3. IBUPROFEN [Concomitant]
  4. MOTRIN [Concomitant]

REACTIONS (6)
  - ABDOMINAL PAIN [None]
  - ANXIETY [None]
  - EMOTIONAL DISTRESS [None]
  - NAUSEA [None]
  - CHOLECYSTITIS ACUTE [None]
  - CHOLELITHIASIS [None]
